FAERS Safety Report 12933617 (Version 4)
Quarter: 2016Q4

REPORT INFORMATION
  Report Type: Spontaneous
  Country: GB (occurrence: GB)
  Receive Date: 20161111
  Receipt Date: 20161205
  Transmission Date: 20170207
  Serious: Yes (Life-Threatening, Hospitalization, Other)
  Sender: FDA-Public Use
  Company Number: GB-SA-2016SA203771

PATIENT
  Age: 44 Year
  Sex: Female
  Weight: 69 kg

DRUGS (7)
  1. METHYLPREDNISOLONE. [Concomitant]
     Active Substance: METHYLPREDNISOLONE
     Indication: INFLAMMATION
     Route: 042
     Dates: start: 20161020, end: 20161024
  2. AMITRIPTYLINE [Concomitant]
     Active Substance: AMITRIPTYLINE
  3. CHLORPHENIRAMINE. [Concomitant]
     Active Substance: CHLORPHENIRAMINE
     Indication: INFLAMMATION
     Route: 042
     Dates: start: 20161020, end: 20161024
  4. ACICLOVIR [Concomitant]
     Active Substance: ACYCLOVIR
  5. PARACETAMOL [Concomitant]
     Active Substance: ACETAMINOPHEN
     Indication: HEADACHE
     Dates: start: 20161020, end: 20161024
  6. LEMTRADA [Suspect]
     Active Substance: ALEMTUZUMAB
     Indication: RELAPSING-REMITTING MULTIPLE SCLEROSIS
     Route: 042
     Dates: start: 20161020, end: 20161024
  7. IBUPROFEN. [Concomitant]
     Active Substance: IBUPROFEN

REACTIONS (8)
  - Pyrexia [Unknown]
  - Somnolence [Unknown]
  - Meningitis listeria [Recovering/Resolving]
  - Malaise [Unknown]
  - Nausea [Recovering/Resolving]
  - Vomiting [Unknown]
  - Headache [Recovering/Resolving]
  - Musculoskeletal stiffness [Unknown]

NARRATIVE: CASE EVENT DATE: 20161024
